FAERS Safety Report 18558562 (Version 1)
Quarter: 2020Q4

REPORT INFORMATION
  Report Type: Report from Study
  Country: US (occurrence: US)
  Receive Date: 20201130
  Receipt Date: 20201130
  Transmission Date: 20210114
  Serious: Yes (Hospitalization)
  Sender: FDA-Public Use
  Company Number: US-GLAXOSMITHKLINE-US-2016TSO00308

PATIENT
  Age: 72 Year
  Sex: Female
  Weight: 84.35 kg

DRUGS (9)
  1. TROLAMINE SALICYLATE. [Concomitant]
     Active Substance: TROLAMINE SALICYLATE
     Indication: ARTHRALGIA
     Dosage: 10 %, PRN
     Route: 061
     Dates: start: 2015
  2. NIRAPARIB [Suspect]
     Active Substance: NIRAPARIB
     Indication: NEOPLASM MALIGNANT
     Dosage: 300 MG, QD
     Route: 048
     Dates: start: 20160802
  3. OXYMETAZOLINE [Concomitant]
     Active Substance: OXYMETAZOLINE
     Indication: HYPERSENSITIVITY
     Dosage: 0.05 %, PRN
     Route: 055
     Dates: start: 2003
  4. PROCHLORPERAZINE. [Concomitant]
     Active Substance: PROCHLORPERAZINE
     Indication: NAUSEA
     Dosage: 10 MG, PRN
     Route: 048
     Dates: start: 20160809
  5. IBUPROFEN. [Concomitant]
     Active Substance: IBUPROFEN
     Indication: ARTHRALGIA
     Dosage: 200 MG, PRN
     Route: 048
     Dates: start: 2005
  6. CETRIZINE [Concomitant]
     Active Substance: CETIRIZINE HYDROCHLORIDE
     Indication: HYPERSENSITIVITY
     Dosage: 10 MG, PRN
     Route: 048
     Dates: start: 2013
  7. SALONPAS PAIN RELIEF [Concomitant]
     Active Substance: MENTHOL\METHYL SALICYLATE
     Indication: ARTHRALGIA
     Dosage: 1 DF, PRN
     Route: 061
     Dates: start: 2015
  8. COLACE [Concomitant]
     Active Substance: DOCUSATE SODIUM
     Indication: CONSTIPATION
     Dosage: 100 MG, BID
     Route: 048
     Dates: start: 20160805
  9. FEXOFENADINE [Concomitant]
     Active Substance: FEXOFENADINE HYDROCHLORIDE
     Indication: HYPERSENSITIVITY
     Dosage: 60 MG, PRN
     Route: 048
     Dates: start: 2003

REACTIONS (1)
  - Pharyngitis streptococcal [Recovered/Resolved]

NARRATIVE: CASE EVENT DATE: 20161022
